FAERS Safety Report 4922592-6 (Version None)
Quarter: 2006Q1

REPORT INFORMATION
  Report Type: 
  Country: None (occurrence: None)
  Receive Date: 20060224
  Receipt Date: 20060211
  Transmission Date: 20060701
  Serious: Yes (Life-Threatening, Hospitalization)
  Sender: FDA-Public Use
  Company Number: GB-GLAXOSMITHKLINE-B0410968A

PATIENT
  Age: 23 Year
  Sex: Male

DRUGS (7)
  1. RISPERIDONE [Suspect]
     Indication: BIPOLAR DISORDER
     Dosage: .5MG PER DAY
     Route: 048
     Dates: start: 20051101, end: 20060106
  2. LITHIUM CARBONATE [Suspect]
     Indication: BIPOLAR DISORDER
     Dosage: 1200MG PER DAY
     Route: 048
     Dates: start: 20020101, end: 20060106
  3. CITALOPRAM [Suspect]
     Indication: BIPOLAR DISORDER
     Dosage: 50MG PER DAY
     Route: 048
     Dates: start: 20050901, end: 20060106
  4. DEPAKOTE [Concomitant]
     Indication: MOOD SWINGS
     Route: 048
     Dates: start: 20050701, end: 20051201
  5. OLANZAPINE [Concomitant]
     Indication: HYPOMANIA
     Route: 048
     Dates: start: 20050501, end: 20050901
  6. ZOPICLONE [Concomitant]
     Indication: INSOMNIA
     Dosage: 7.5MG PER DAY
     Route: 048
     Dates: start: 20050101, end: 20060101
  7. LORAZEPAM [Concomitant]
     Indication: AGITATION
     Route: 048
     Dates: start: 20050101, end: 20060101

REACTIONS (1)
  - NEUROLEPTIC MALIGNANT SYNDROME [None]
